FAERS Safety Report 9531224 (Version 2)
Quarter: 2013Q3

REPORT INFORMATION
  Report Type: Spontaneous
  Country: GB (occurrence: None)
  Receive Date: 20130916
  Receipt Date: 20130920
  Transmission Date: 20140515
  Serious: Yes (Death, Other)
  Sender: FDA-Public Use
  Company Number: 2013260917

PATIENT
  Age: 84 Year
  Sex: Female
  Weight: 42 kg

DRUGS (11)
  1. DALTEPARIN SODIUM [Suspect]
     Indication: PROPHYLAXIS
     Route: 058
     Dates: end: 20130201
  2. ACETYLSALICYLIC ACID (ACETYLSALICYLIC ACID) [Concomitant]
  3. AMLODIPINE (AMLODIPINE) [Concomitant]
  4. CIPROFLOXACIN (CIPROFLOXACIN) [Concomitant]
  5. METRONIDAZOLE (METRONIDAZOLE) [Concomitant]
  6. VANCOMYCIN (VANCOMYCIN) [Concomitant]
  7. MEROPENEM (MEROPENEM) [Concomitant]
  8. FUROSEMIDE (FUROSEMID) [Concomitant]
  9. PARACETAMOL (PARACETAMOL) [Concomitant]
  10. MORPHINE [Concomitant]
  11. BENDROFLUMETHIAZIDE (BENDROFLUMETHIAZIDE) [Concomitant]

REACTIONS (5)
  - Heparin-induced thrombocytopenia [None]
  - Petechiae [None]
  - Pneumonia [None]
  - Pneumonia aspiration [None]
  - Disease complication [None]
